FAERS Safety Report 13961430 (Version 1)
Quarter: 2017Q3

REPORT INFORMATION
  Report Type: Report from Study
  Country: US (occurrence: US)
  Receive Date: 20170912
  Receipt Date: 20170912
  Transmission Date: 20171128
  Serious: Yes (Death)
  Sender: FDA-Public Use
  Company Number: US-EXELIXIS-CABO-17010428

PATIENT
  Sex: Female
  Weight: 53.52 kg

DRUGS (11)
  1. CABOMETYX [Suspect]
     Active Substance: CABOZANTINIB S-MALATE
     Indication: HEPATIC NEOPLASM
  2. METHADONE [Concomitant]
     Active Substance: METHADONE HYDROCHLORIDE
  3. DEXAMETHASONE. [Concomitant]
     Active Substance: DEXAMETHASONE
  4. MUPIROCIN. [Concomitant]
     Active Substance: MUPIROCIN
  5. POLYETHYLENE GLYCOL [Concomitant]
     Active Substance: POLYETHYLENE GLYCOLS
  6. DULOXETINE. [Concomitant]
     Active Substance: DULOXETINE
  7. CEPHALEXIN. [Concomitant]
     Active Substance: CEPHALEXIN
  8. CABOMETYX [Suspect]
     Active Substance: CABOZANTINIB S-MALATE
     Indication: COLON CANCER
     Dosage: 40 MG, QD
     Route: 048
     Dates: start: 20170628
  9. HYDROMORPHONE [Concomitant]
     Active Substance: HYDROMORPHONE
  10. BENEPROTEIN [Concomitant]
     Active Substance: DIETARY SUPPLEMENT
  11. SENEXON-S [Concomitant]
     Active Substance: DOCUSATE SODIUM\SENNOSIDES A AND B

REACTIONS (2)
  - Off label use [Unknown]
  - Death [Fatal]
